FAERS Safety Report 25090817 (Version 1)
Quarter: 2025Q1

REPORT INFORMATION
  Report Type: Spontaneous
  Country: US (occurrence: None)
  Receive Date: 20250318
  Receipt Date: 20250318
  Transmission Date: 20250408
  Serious: Yes (Other)
  Sender: FDA-CTU
  Company Number: None

PATIENT
  Age: 55 Year
  Sex: Female
  Weight: 54 kg

DRUGS (4)
  1. BIVIGAM [Suspect]
     Active Substance: HUMAN IMMUNOGLOBULIN G
     Indication: Hypogammaglobulinaemia
     Route: 041
     Dates: start: 20250311
  2. Diphenhydramine 25mg PO premed [Concomitant]
     Dates: start: 20250311, end: 20250311
  3. Acetaminophen 650mg PO premed [Concomitant]
     Dates: start: 20250311, end: 20250311
  4. Solu Medrol 125mg IV [Concomitant]
     Dates: start: 20250311, end: 20250311

REACTIONS (4)
  - Infusion related reaction [None]
  - Rash [None]
  - Rhinorrhoea [None]
  - Speech disorder [None]

NARRATIVE: CASE EVENT DATE: 20250311
